FAERS Safety Report 12244898 (Version 1)
Quarter: 2016Q2

REPORT INFORMATION
  Report Type: Spontaneous
  Country: US (occurrence: None)
  Receive Date: 20160406
  Receipt Date: 20160406
  Transmission Date: 20160815
  Serious: Yes (Other)
  Sender: FDA-Public Use
  Company Number: None

PATIENT
  Age: 55 Year
  Sex: Female
  Weight: 65.77 kg

DRUGS (2)
  1. EXCEDRIN [Concomitant]
     Active Substance: ACETAMINOPHEN\ASPIRIN\CAFFEINE
  2. SUMATRIPTAN SUCCINATE 50 MG TABL, 50 MG [Suspect]
     Active Substance: SUMATRIPTAN SUCCINATE
     Indication: MIGRAINE
     Route: 048
     Dates: start: 20150325, end: 20160404

REACTIONS (5)
  - Therapeutic response decreased [None]
  - Dizziness [None]
  - Product substitution issue [None]
  - Nausea [None]
  - Incorrect dose administered [None]

NARRATIVE: CASE EVENT DATE: 20160403
